FAERS Safety Report 8424050-3 (Version None)
Quarter: 2012Q2

REPORT INFORMATION
  Report Type: 
  Country: None (occurrence: None)
  Receive Date: 20120608
  Receipt Date: 20110603
  Transmission Date: 20120825
  Serious: No
  Sender: FDA-Public Use
  Company Number: US-ASTRAZENECA-2011SE34382

PATIENT
  Age: 83 Year
  Sex: Female

DRUGS (2)
  1. PULMICORT FLEXHALER [Suspect]
     Indication: WHEEZING
     Dosage: 2 PUFFS TWICE DAILY
     Route: 055
     Dates: start: 20110501
  2. PULMICORT FLEXHALER [Suspect]
     Dosage: 1 PUFF TWICE DAILY
     Route: 055

REACTIONS (2)
  - INCORRECT DOSE ADMINISTERED [None]
  - EYE IRRITATION [None]
